FAERS Safety Report 4427251-4 (Version None)
Quarter: 2004Q3

REPORT INFORMATION
  Report Type: 
  Country: None (occurrence: None)
  Receive Date: 20040813
  Receipt Date: 20040813
  Transmission Date: 20050211
  Serious: Yes (Other)
  Sender: FDA-Public Use
  Company Number: None

PATIENT
  Age: 34 Year
  Sex: Male
  Weight: 88.4514 kg

DRUGS (1)
  1. EFFEXOR XR [Suspect]
     Indication: MAJOR DEPRESSION
     Dosage: 75MG  DAY  ORAL
     Route: 048

REACTIONS (6)
  - BRUXISM [None]
  - DRUG WITHDRAWAL SYNDROME [None]
  - EAR PAIN [None]
  - MIGRAINE [None]
  - NAUSEA [None]
  - PARAESTHESIA [None]
